FAERS Safety Report 7417266 (Version 3)
Quarter: 2022Q1

REPORT INFORMATION
  Report Type: Spontaneous
  Country: GR (occurrence: GR)
  Receive Date: 20100611
  Receipt Date: 20220303
  Transmission Date: 20220423
  Serious: Yes (Hospitalization, Other)
  Sender: FDA-Public Use
  Company Number: GR-JNJFOC-20100601649

PATIENT
  Age: 49 Year
  Sex: Male

DRUGS (2)
  1. REMICADE [Suspect]
     Active Substance: INFLIXIMAB
     Indication: Psoriatic arthropathy
     Route: 042
  2. METHOTREXATE [Concomitant]
     Active Substance: METHOTREXATE
     Indication: Psoriatic arthropathy
     Route: 065

REACTIONS (2)
  - Immune reconstitution inflammatory syndrome [Recovered/Resolved]
  - Pericarditis tuberculous [Recovered/Resolved]
